FAERS Safety Report 19256146 (Version 9)
Quarter: 2022Q4

REPORT INFORMATION
  Report Type: Spontaneous
  Country: CZ (occurrence: CZ)
  Receive Date: 20210513
  Receipt Date: 20221005
  Transmission Date: 20230113
  Serious: No
  Sender: FDA-Public Use
  Company Number: CZ-ALLERGAN-2118150US

PATIENT
  Sex: Male

DRUGS (6)
  1. CARIPRAZINE HYDROCHLORIDE [Suspect]
     Active Substance: CARIPRAZINE HYDROCHLORIDE
     Indication: Schizophrenia
     Dosage: 6 MG, QD WITH OLANZAPINE 20 MG
     Dates: start: 202012
  2. ESCITALOPRAM OXALATE [Suspect]
     Active Substance: ESCITALOPRAM OXALATE
     Indication: Schizophrenia
     Dosage: WITH OLANZAPINE
  3. OLANZAPINE [Suspect]
     Active Substance: OLANZAPINE
     Indication: Schizophrenia
     Dosage: 20 MG, QD
     Dates: start: 202012
  4. OLANZAPINE [Suspect]
     Active Substance: OLANZAPINE
     Dosage: UNK
  5. PALIPERIDONE [Suspect]
     Active Substance: PALIPERIDONE
     Indication: Schizophrenia
     Dosage: WITH OLANZAPINE, PO OR DEPOT
     Route: 048
  6. ARIPIPRAZOLE [Suspect]
     Active Substance: ARIPIPRAZOLE
     Indication: Schizophrenia
     Dosage: WITH OLANZAPINE

REACTIONS (5)
  - Treatment noncompliance [Unknown]
  - Weight increased [Recovering/Resolving]
  - Restlessness [Recovered/Resolved]
  - Product use in unapproved indication [Unknown]
  - Therapeutic product effect incomplete [Unknown]
